FAERS Safety Report 9607610 (Version 2)
Quarter: 2013Q4

REPORT INFORMATION
  Report Type: Report from Study
  Country: VE (occurrence: VE)
  Receive Date: 20131009
  Receipt Date: 20131203
  Transmission Date: 20140711
  Serious: Yes (Hospitalization)
  Sender: FDA-Public Use
  Company Number: PHHY2013VE112203

PATIENT
  Age: 21 Year
  Sex: Female

DRUGS (3)
  1. SANDOSTATIN LAR [Suspect]
     Indication: NEUROENDOCRINE TUMOUR
     Dosage: 30 MG, PER MONTH
     Route: 030
     Dates: start: 20130818
  2. PHENTOLAMINE [Concomitant]
     Dosage: 10 MG, UNK
  3. ESMOLOL [Concomitant]
     Dosage: 10 MG, UNK

REACTIONS (1)
  - Hypertensive crisis [Not Recovered/Not Resolved]
